FAERS Safety Report 8998567 (Version 1)
Quarter: 2013Q1

REPORT INFORMATION
  Report Type: Spontaneous
  Country: US (occurrence: US)
  Receive Date: 20130103
  Receipt Date: 20130103
  Transmission Date: 20140127
  Serious: Yes (Other)
  Sender: FDA-Public Use
  Company Number: US-AMGEN-USASP2012084206

PATIENT
  Age: 47 Year
  Sex: Male
  Weight: 104.31 kg

DRUGS (5)
  1. ENBREL [Suspect]
     Indication: PRODUCT USED FOR UNKNOWN INDICATION
     Dosage: 50 MG, QWK
     Route: 058
  2. ZOCOR [Concomitant]
     Dosage: 200 MG, UNK
  3. MULTI-VIT [Concomitant]
     Dosage: UNK
  4. VITAMIN C                          /00008001/ [Concomitant]
     Dosage: 500 MG, UNK
  5. CLARITIN                           /00413701/ [Concomitant]
     Dosage: 10 MG, UNK

REACTIONS (1)
  - Oligodendroglioma [Unknown]
